FAERS Safety Report 4548020-0 (Version None)
Quarter: 2004Q4

REPORT INFORMATION
  Report Type: 
  Country: None (occurrence: None)
  Receive Date: 20041227
  Receipt Date: 20040923
  Transmission Date: 20050328
  Serious: No
  Sender: FDA-Public Use
  Company Number: 04P-163-0274403-00

PATIENT
  Age: 75 Year
  Sex: Female
  Weight: 72.5755 kg

DRUGS (9)
  1. HUMIRA [Suspect]
     Indication: RHEUMATOID ARTHRITIS
     Dosage: 40 MG, 1 IN 2 WK, SUBCUTANEOUS
     Route: 058
     Dates: start: 20040801
  2. METHOTREXATE SODIUM [Concomitant]
  3. AETONAL [Concomitant]
  4. HYDROCHLOROTHIAZIDE [Concomitant]
  5. ASPIRIN [Concomitant]
  6. TOCOPHEROL CONCENTRATE CAP [Concomitant]
  7. FOLIC ACID [Concomitant]
  8. RABEPRAZOLE SODIUM [Concomitant]
  9. FISH OIL [Concomitant]

REACTIONS (3)
  - CONTUSION [None]
  - EXCORIATION [None]
  - FALL [None]
